FAERS Safety Report 8967759 (Version 1)
Quarter: 2012Q4

REPORT INFORMATION
  Report Type: Spontaneous
  Country: US (occurrence: None)
  Receive Date: 20121213
  Receipt Date: 20121213
  Transmission Date: 20130627
  Serious: Yes (Other)
  Sender: FDA-Public Use
  Company Number: None

PATIENT
  Age: 59 Year
  Sex: Female
  Weight: 54.43 kg

DRUGS (1)
  1. AVALOX [Suspect]
     Indication: PNEUMONIA
     Dosage: unknown   twice daily?    po
     Route: 048
     Dates: start: 20111128, end: 20111128

REACTIONS (3)
  - Confusional state [None]
  - Anxiety [None]
  - Speech disorder [None]
